FAERS Safety Report 9538621 (Version 1)
Quarter: 2013Q2

REPORT INFORMATION
  Report Type: Spontaneous
  Country: US (occurrence: None)
  Receive Date: 20130517
  Receipt Date: 20130517
  Transmission Date: 20140414
  Serious: No
  Sender: FDA-Public Use
  Company Number: 1000042475

PATIENT
  Age: 78 Year
  Sex: Female

DRUGS (10)
  1. VIIBRYD (VILAZODONE HYDROCHLORIDE) (10 MILLIGRAM, TABLETS) [Suspect]
     Indication: DEPRESSION
     Route: 048
     Dates: start: 20130202
  2. DULERA [Suspect]
     Dates: start: 20130202
  3. SYNTHROID (LEVOTHYROXINE SODIUM) (LEVOTHYROXINE SODIUM0 [Concomitant]
  4. TWYNSTA (TWYNSTA) (TWYNSTA) [Concomitant]
  5. CRESTOR (ROSUVASTATIN CALCIUM) (ROSUVASTATIN CALCIUM) [Concomitant]
  6. NOVOLOG (INSULIN ASPART) (INSULIN ASPART) [Concomitant]
  7. LEVEMIR (INSULIN DETEMIR) (INSULIN DETEMIR) [Concomitant]
  8. METFORMIN (METFORMIN) (METFORMIN) [Concomitant]
  9. CETIRIZINE (CETIRIZINE) (CETIRIZINE) [Concomitant]
  10. MELOXICAM (MELOXICAM) (MELOXICAM) [Concomitant]

REACTIONS (1)
  - Insomnia [None]
